FAERS Safety Report 6733827-1 (Version None)
Quarter: 2010Q2

REPORT INFORMATION
  Report Type: 
  Country: None (occurrence: None)
  Receive Date: 20100520
  Receipt Date: 20100308
  Transmission Date: 20101027
  Serious: Yes (Life-Threatening)
  Sender: FDA-Public Use
  Company Number: FR-JNJFOC-20100507454

PATIENT
  Sex: Female

DRUGS (10)
  1. IXPRIM [Suspect]
     Indication: DRUG USE FOR UNKNOWN INDICATION
     Dosage: 2 DOSE FREQUENCY, 3 PER DAY
     Route: 048
  2. CALCIPARINE [Suspect]
     Indication: DRUG USE FOR UNKNOWN INDICATION
     Dosage: 0.6 ML, 2 PER DAY
     Route: 058
  3. COUMADIN [Interacting]
     Indication: DRUG USE FOR UNKNOWN INDICATION
     Dosage: 1 MG, 1 PER DAY
     Route: 048
  4. AMITRIPTYLINE HCL [Concomitant]
     Route: 065
  5. UNICORDIUM [Concomitant]
     Route: 065
  6. CIBACENE [Concomitant]
  7. LORAZEPAM [Concomitant]
     Route: 065
  8. NITRODERM [Concomitant]
     Route: 065
  9. LAMALINE [Concomitant]
     Route: 065
  10. ROCEPHIN [Concomitant]

REACTIONS (4)
  - DRUG INTERACTION [None]
  - INTERNATIONAL NORMALISED RATIO INCREASED [None]
  - MUSCLE HAEMORRHAGE [None]
  - SHOCK HAEMORRHAGIC [None]
